FAERS Safety Report 14447963 (Version 1)
Quarter: 2018Q1

REPORT INFORMATION
  Report Type: Spontaneous
  Country: US (occurrence: US)
  Receive Date: 20180126
  Receipt Date: 20180126
  Transmission Date: 20180509
  Serious: Yes (Death, Other)
  Sender: FDA-Public Use
  Company Number: US-SHIRE-US201516355

PATIENT
  Age: 72 Year
  Sex: Female

DRUGS (3)
  1. LIPIDS NOS W/PROTEINS NOS/VITAMINS NOS [Concomitant]
     Active Substance: AMINO ACIDS\SOYBEAN OIL\VITAMINS
     Indication: NUTRITIONAL SUPPLEMENTATION
     Dosage: UNK
     Route: 042
  2. TEDUGLUTIDE [Suspect]
     Active Substance: TEDUGLUTIDE
     Indication: MALABSORPTION
     Dosage: 0.05 MG/KG, 1X/DAY:QD
     Route: 058
  3. TEDUGLUTIDE [Suspect]
     Active Substance: TEDUGLUTIDE
     Indication: INFLAMMATORY BOWEL DISEASE

REACTIONS (2)
  - Off label use [Unknown]
  - Death [Fatal]
